FAERS Safety Report 5506364-X (Version None)
Quarter: 2007Q4

REPORT INFORMATION
  Report Type: 
  Country: None (occurrence: None)
  Receive Date: 20071101
  Receipt Date: 20071018
  Transmission Date: 20080405
  Serious: Yes (Life-Threatening, Other)
  Sender: FDA-Public Use
  Company Number: 2007001641

PATIENT
  Age: 76 Year
  Sex: Female

DRUGS (3)
  1. MACUGEN [Suspect]
     Dosage: INTRA-VITREAL
     Dates: start: 20070801
  2. WARFARIN SODIUM [Concomitant]
  3. TRIMETHOPRIM [Concomitant]

REACTIONS (1)
  - INTERNATIONAL NORMALISED RATIO INCREASED [None]
